FAERS Safety Report 10878895 (Version 3)
Quarter: 2015Q1

REPORT INFORMATION
  Report Type: Spontaneous
  Country: PK (occurrence: PK)
  Receive Date: 20150302
  Receipt Date: 20150326
  Transmission Date: 20150721
  Serious: Yes (Death, Hospitalization, Other)
  Sender: FDA-Public Use
  Company Number: PK-PFIZER INC-2015074509

PATIENT

DRUGS (1)
  1. SUTENT [Suspect]
     Active Substance: SUNITINIB MALATE
     Indication: METASTATIC RENAL CELL CARCINOMA
     Dosage: 25 MG, UNK
     Route: 048

REACTIONS (5)
  - Loss of consciousness [Fatal]
  - Hypophagia [Fatal]
  - Asthenia [Fatal]
  - Cardiopulmonary failure [Fatal]
  - Pain [Unknown]
